FAERS Safety Report 7117241-5 (Version None)
Quarter: 2010Q4

REPORT INFORMATION
  Report Type: 
  Country: None (occurrence: None)
  Receive Date: 20101112
  Receipt Date: 20101101
  Transmission Date: 20110411
  Serious: Yes (Death)
  Sender: FDA-Public Use
  Company Number: 2010MA004105

PATIENT
  Age: 26 Year
  Sex: Male

DRUGS (11)
  1. OXYCODONE HCL [Suspect]
  2. COCAINE (COCAINE) [Suspect]
     Dosage: 5 GM;PO
     Route: 048
  3. BENZOYLECOGONINE (NO PREF. NAME) [Suspect]
  4. ECGONNIE METHY ESTER (NO PREF. NAME) [Suspect]
  5. DIAZEPAM [Suspect]
  6. NORDAZEPAM (NORDAZEPAM) [Suspect]
  7. FEVERALL [Suspect]
  8. CIPRAMIL [Concomitant]
  9. MORPHINE [Concomitant]
  10. ALCOHOL [Concomitant]
  11. PREV MEDS [Concomitant]

REACTIONS (5)
  - DYSPNOEA [None]
  - GAIT DISTURBANCE [None]
  - OVERDOSE [None]
  - RESPIRATORY ARREST [None]
  - SELF INJURIOUS BEHAVIOUR [None]
